FAERS Safety Report 7554922-3 (Version None)
Quarter: 2011Q2

REPORT INFORMATION
  Report Type: 
  Country: None (occurrence: None)
  Receive Date: 20110617
  Receipt Date: 20110608
  Transmission Date: 20111010
  Serious: Yes (Hospitalization)
  Sender: FDA-Public Use
  Company Number: US-ELI_LILLY_AND_COMPANY-US201106002695

PATIENT
  Sex: Female

DRUGS (4)
  1. BYETTA [Suspect]
     Dosage: 5 UG, QD
     Route: 058
     Dates: start: 20110608
  2. METFORMIN HCL [Concomitant]
     Dosage: UNK, BID
  3. BYETTA [Suspect]
     Dosage: 5 UG, BID
     Route: 058
     Dates: start: 20110601, end: 20110608
  4. BYETTA [Suspect]
     Indication: TYPE 2 DIABETES MELLITUS
     Dosage: UNK
     Route: 058
     Dates: start: 20080101, end: 20110301

REACTIONS (4)
  - BLOOD PRESSURE INCREASED [None]
  - VOMITING [None]
  - UNDERDOSE [None]
  - NAUSEA [None]
